FAERS Safety Report 25726705 (Version 2)
Quarter: 2025Q4

REPORT INFORMATION
  Report Type: Spontaneous
  Country: US (occurrence: US)
  Receive Date: 20250826
  Receipt Date: 20251007
  Transmission Date: 20260118
  Serious: No
  Sender: SANDOZ
  Company Number: US-SANDOZ-SDZ2025US060832

PATIENT
  Sex: Male

DRUGS (6)
  1. OMNITROPE [Suspect]
     Active Substance: SOMATROPIN
     Indication: Hypopituitarism
     Dosage: (STRENGTH 10MG/1.5ML)
     Route: 058
     Dates: start: 20250820, end: 20250820
  2. OMNITROPE [Suspect]
     Active Substance: SOMATROPIN
     Indication: Hypopituitarism
     Dosage: (STRENGTH 10MG/1.5ML)
     Route: 058
     Dates: start: 20250820, end: 20250820
  3. OMNITROPE [Suspect]
     Active Substance: SOMATROPIN
     Indication: Phosphorus metabolism disorder
  4. OMNITROPE [Suspect]
     Active Substance: SOMATROPIN
     Indication: Phosphorus metabolism disorder
  5. OMNITROPE [Suspect]
     Active Substance: SOMATROPIN
     Indication: Short stature
  6. OMNITROPE [Suspect]
     Active Substance: SOMATROPIN
     Indication: Short stature

REACTIONS (2)
  - Circumstance or information capable of leading to device use error [Unknown]
  - Device breakage [Unknown]
